FAERS Safety Report 5935246-4 (Version None)
Quarter: 2008Q4

REPORT INFORMATION
  Report Type: 
  Country: None (occurrence: None)
  Receive Date: 20081028
  Receipt Date: 20081014
  Transmission Date: 20090506
  Serious: Yes (Other)
  Sender: FDA-Public Use
  Company Number: 2008SP020928

PATIENT
  Age: 4 Year

DRUGS (1)
  1. CLARITIN [Suspect]
     Indication: PRURITUS
     Dosage: 5 MG; PO
     Route: 048
     Dates: start: 20081003, end: 20081004

REACTIONS (1)
  - FEBRILE CONVULSION [None]
